FAERS Safety Report 5644528-5 (Version None)
Quarter: 2008Q1

REPORT INFORMATION
  Report Type: 
  Country: None (occurrence: None)
  Receive Date: 20080229
  Receipt Date: 20070214
  Transmission Date: 20080703
  Serious: No
  Sender: FDA-Public Use
  Company Number: A0639757A

PATIENT

DRUGS (1)
  1. VALTREX [Suspect]
     Dosage: 1MG THREE TIMES PER DAY

REACTIONS (2)
  - DRY SKIN [None]
  - PRURITUS [None]
